FAERS Safety Report 5320372-3 (Version None)
Quarter: 2007Q2

REPORT INFORMATION
  Report Type: 
  Country: None (occurrence: None)
  Receive Date: 20070509
  Receipt Date: 20070502
  Transmission Date: 20071010
  Serious: Yes (Hospitalization)
  Sender: FDA-Public Use
  Company Number: ES-ROCHE-495567

PATIENT
  Age: 67 Year
  Sex: Male

DRUGS (14)
  1. MYCOPHENOLATE MOFETIL [Suspect]
     Route: 048
     Dates: start: 20070308
  2. MYCOPHENOLATE MOFETIL [Suspect]
     Route: 048
     Dates: start: 20070309
  3. TACROLIMUS [Suspect]
     Route: 048
     Dates: start: 20070308
  4. TACROLIMUS [Suspect]
     Route: 048
     Dates: start: 20070309, end: 20070312
  5. TACROLIMUS [Suspect]
     Route: 048
     Dates: start: 20070319
  6. SEPTRIN [Concomitant]
  7. FUROSEMIDE [Concomitant]
  8. ALOPURINOL [Concomitant]
  9. AUGMENTIN '125' [Concomitant]
  10. OMEPRAZOLE [Concomitant]
  11. INSULIN HUMAN [Concomitant]
     Dosage: DRUG REPORTED AS INSULIN NORDISK.
  12. NORADRENALINE [Concomitant]
  13. DOPAMINE HCL [Concomitant]
  14. AMIODARONE HCL [Concomitant]

REACTIONS (2)
  - OBSTRUCTIVE UROPATHY [None]
  - REPERFUSION INJURY [None]
